FAERS Safety Report 8229108-X (Version None)
Quarter: 2012Q1

REPORT INFORMATION
  Report Type: 
  Country: None (occurrence: None)
  Receive Date: 20120322
  Receipt Date: 20120316
  Transmission Date: 20120608
  Serious: Yes (Other)
  Sender: FDA-Public Use
  Company Number: BR-JNJFOC-20120308825

PATIENT
  Age: 52 Year
  Sex: Female
  Weight: 52 kg

DRUGS (2)
  1. HALDOL [Suspect]
     Route: 048
  2. HALDOL [Suspect]
     Indication: PRODUCT USED FOR UNKNOWN INDICATION
     Route: 048
     Dates: start: 20060101

REACTIONS (2)
  - PSORIASIS [None]
  - DYSKINESIA [None]
